FAERS Safety Report 4633147-5 (Version None)
Quarter: 2005Q2

REPORT INFORMATION
  Report Type: 
  Country: None (occurrence: None)
  Receive Date: 20050412
  Receipt Date: 20050407
  Transmission Date: 20051028
  Serious: Yes (Hospitalization)
  Sender: FDA-Public Use
  Company Number: FR-GLAXOSMITHKLINE-B0377323A

PATIENT
  Age: 46 Year
  Sex: Male

DRUGS (5)
  1. COMBIVIR [Suspect]
     Indication: HIV INFECTION
     Dosage: 1UNIT TWICE PER DAY
     Route: 048
  2. VIRAMUNE [Suspect]
     Indication: HIV INFECTION
     Dosage: 200MG TWICE PER DAY
     Route: 048
  3. ACTOS [Suspect]
     Route: 048
  4. DIAMICRON [Suspect]
     Dosage: 120MG PER DAY
     Route: 048
  5. MEDIATOR [Suspect]
     Dosage: 150MG THREE TIMES PER DAY
     Route: 048

REACTIONS (1)
  - MYOCARDIAL INFARCTION [None]
